FAERS Safety Report 6637340-1 (Version None)
Quarter: 2010Q1

REPORT INFORMATION
  Report Type: 
  Country: None (occurrence: None)
  Receive Date: 20100311
  Receipt Date: 20100302
  Transmission Date: 20100710
  Serious: Yes (Life-Threatening, Hospitalization, Other)
  Sender: FDA-Public Use
  Company Number: 006362

PATIENT
  Age: 76 Year
  Sex: Female

DRUGS (6)
  1. KEPPRA [Suspect]
     Indication: CONVULSION
     Dosage: (500 MG BID ORAL)
     Route: 048
     Dates: start: 20100127, end: 20100129
  2. ATARAX [Suspect]
     Dosage: (50 MG QD ORAL)
     Route: 048
     Dates: start: 20100128, end: 20100129
  3. NEURONTIN [Concomitant]
  4. RISPERDAL [Concomitant]
  5. EXELON [Concomitant]
  6. DURAGESIC-100 [Concomitant]

REACTIONS (1)
  - COMA [None]
